FAERS Safety Report 6294836-2 (Version None)
Quarter: 2009Q3

REPORT INFORMATION
  Report Type: 
  Country: None (occurrence: None)
  Receive Date: 20090803
  Receipt Date: 20090721
  Transmission Date: 20100115
  Serious: Yes (Other)
  Sender: FDA-Public Use
  Company Number: PHHY2009JP30552

PATIENT
  Sex: Male

DRUGS (2)
  1. VOLTAREN [Suspect]
     Indication: ANALGESIA
     Dosage: UNK
     Route: 048
     Dates: start: 20070209, end: 20070401
  2. HYPEN [Suspect]
     Route: 048

REACTIONS (3)
  - DRUG ERUPTION [None]
  - ECZEMA [None]
  - HYPERSENSITIVITY [None]
